FAERS Safety Report 17351749 (Version 1)
Quarter: 2020Q1

REPORT INFORMATION
  Report Type: Spontaneous
  Country: CN (occurrence: CN)
  Receive Date: 20200130
  Receipt Date: 20200130
  Transmission Date: 20200409
  Serious: Yes (Life-Threatening, Other)
  Sender: FDA-Public Use
  Company Number: CN-BAYER-2020-011970

PATIENT
  Age: 56 Year
  Sex: Female
  Weight: 65 kg

DRUGS (2)
  1. GADOXETIC ACID DISODIUM [Suspect]
     Active Substance: GADOXETATE DISODIUM
     Indication: BREAST CANCER
  2. GADOXETIC ACID DISODIUM [Suspect]
     Active Substance: GADOXETATE DISODIUM
     Indication: MAGNETIC RESONANCE IMAGING LIVER
     Dosage: WAS INJECTED FROM A CATHETER PLACED WITHIN A HAND VEIN AT A RATE OF 1.5 ML/S AND AT A FIXED DOSE OF
     Route: 042

REACTIONS (6)
  - Off label use [None]
  - Urinary incontinence [None]
  - Loss of consciousness [Recovering/Resolving]
  - Flushing [None]
  - Hypersensitivity [None]
  - Hyperhidrosis [None]
